FAERS Safety Report 7384235-4 (Version None)
Quarter: 2011Q1

REPORT INFORMATION
  Report Type: 
  Country: None (occurrence: None)
  Receive Date: 20110322
  Receipt Date: 20110308
  Transmission Date: 20110831
  Serious: Yes (Hospitalization, Other)
  Sender: FDA-Public Use
  Company Number: JPI-P-014126

PATIENT
  Age: 79 Year
  Sex: Female
  Weight: 58.514 kg

DRUGS (1)
  1. XYREM [Suspect]
     Indication: CATAPLEXY
     Dosage: 2 IN 1 D, 6GM (3GM 2 IN 1 D)ORAL
     Route: 048
     Dates: start: 20040801

REACTIONS (4)
  - JOINT INJURY [None]
  - FALL [None]
  - DRY MOUTH [None]
  - POOR PERIPHERAL CIRCULATION [None]
